FAERS Safety Report 6290801-X (Version None)
Quarter: 2009Q3

REPORT INFORMATION
  Report Type: 
  Country: None (occurrence: None)
  Receive Date: 20090729
  Receipt Date: 20090729
  Transmission Date: 20100115
  Serious: Yes (Other)
  Sender: FDA-Public Use
  Company Number: None

PATIENT
  Age: 26 Year
  Sex: Female
  Weight: 49.8957 kg

DRUGS (2)
  1. KENALOG [Suspect]
     Indication: ANTIINFLAMMATORY THERAPY
     Dosage: 40MG 1 IM
     Route: 030
     Dates: start: 20090508, end: 20090508
  2. KENALOG [Suspect]
     Indication: ARTHROPOD BITE
     Dosage: 40MG 1 IM
     Route: 030
     Dates: start: 20090508, end: 20090508

REACTIONS (4)
  - DEPRESSION [None]
  - INJECTION SITE DISCOLOURATION [None]
  - INJECTION SITE REACTION [None]
  - MOOD SWINGS [None]
